FAERS Safety Report 7410638-5 (Version None)
Quarter: 2011Q2

REPORT INFORMATION
  Report Type: 
  Country: None (occurrence: None)
  Receive Date: 20110413
  Receipt Date: 20110304
  Transmission Date: 20111010
  Serious: Yes (Disabling, Other)
  Sender: FDA-Public Use
  Company Number: US-BAYER-201031065NA

PATIENT
  Age: 29 Year
  Sex: Female

DRUGS (4)
  1. ATIVAN [Concomitant]
  2. WELLBUTRIN [Concomitant]
  3. YAZ [Suspect]
     Dosage: SHE TOOK YAZ UNTIL THE SPRING OF 2008
     Route: 048
     Dates: start: 20071101, end: 20080615
  4. YASMIN [Suspect]
     Indication: PRODUCT USED FOR UNKNOWN INDICATION

REACTIONS (5)
  - AGORAPHOBIA [None]
  - ANXIETY [None]
  - SUICIDE ATTEMPT [None]
  - DEPRESSION [None]
  - PARANOIA [None]
